FAERS Safety Report 8831141 (Version 2)
Quarter: 2012Q4

REPORT INFORMATION
  Report Type: 
  Country: DE (occurrence: DE)
  Receive Date: 20121009
  Receipt Date: 20121030
  Transmission Date: 20130627
  Serious: Yes (Life-Threatening, Hospitalization)
  Sender: FDA-Public Use
  Company Number: DE-JNJFOC-20120913139

PATIENT
  Age: 25 Year
  Sex: Female
  Weight: 51 kg

DRUGS (5)
  1. REMICADE [Suspect]
     Indication: CROHN^S DISEASE
     Dosage: 250 mg; received 25 infusions
     Route: 042
     Dates: start: 20090512
  2. CORTISONE [Concomitant]
  3. CIPROFLOXACIN [Concomitant]
     Dates: start: 20121002, end: 20121012
  4. METRONIDAZOLE [Concomitant]
     Dates: start: 20121002, end: 20121012
  5. PREDNISOLONE [Concomitant]
     Indication: CROHN^S DISEASE
     Dates: start: 20121002, end: 20121023

REACTIONS (1)
  - Clear cell renal cell carcinoma [Recovered/Resolved]
